FAERS Safety Report 7781954-2 (Version None)
Quarter: 2011Q3

REPORT INFORMATION
  Report Type: 
  Country: None (occurrence: None)
  Receive Date: 20110927
  Receipt Date: 20110915
  Transmission Date: 20111222
  Serious: Yes (Disabling, Other)
  Sender: FDA-Public Use
  Company Number: PHHY2011US03556

PATIENT
  Sex: Female

DRUGS (7)
  1. METHOTREXATE [Concomitant]
     Route: 042
  2. GLEEVEC [Suspect]
     Dosage: 300 MG, QD
     Route: 048
  3. ZOFRAN [Concomitant]
     Indication: NAUSEA
     Dosage: 8 MG, QD
     Route: 048
  4. FLEXIUM [Concomitant]
     Indication: PAIN
     Dosage: 10 MG, QD
     Route: 048
  5. GLEEVEC [Suspect]
     Indication: ACUTE LYMPHOCYTIC LEUKAEMIA
     Dosage: 600 MG, QD
     Route: 048
     Dates: start: 20101011, end: 20101223
  6. GLEEVEC [Suspect]
     Indication: CHROMOSOME ANALYSIS ABNORMAL
     Dosage: 600 MG, QD
     Route: 048
     Dates: start: 20101108
  7. CHEMOTHERAPEUTICS NOS [Concomitant]

REACTIONS (4)
  - ATAXIA [None]
  - NERVOUS SYSTEM DISORDER [None]
  - DIZZINESS [None]
  - FLUID RETENTION [None]
